FAERS Safety Report 7938028-7 (Version None)
Quarter: 2011Q4

REPORT INFORMATION
  Report Type: 
  Country: None (occurrence: None)
  Receive Date: 20111123
  Receipt Date: 20111116
  Transmission Date: 20120403
  Serious: No
  Sender: FDA-Public Use
  Company Number: US-ENDO PHARMACEUTICALS INC.-PROP20110214

PATIENT
  Sex: Male

DRUGS (1)
  1. PROPOXYPHENE NAPSYLATE W/ ACETAMINOPHEN [Suspect]
     Indication: PAIN
     Dosage: UNKNOWN
     Route: 048
     Dates: start: 19670101, end: 20100101

REACTIONS (4)
  - MYOCARDIAL INFARCTION [None]
  - TACHYCARDIA [None]
  - MOVEMENT DISORDER [None]
  - ATRIAL FIBRILLATION [None]
